FAERS Safety Report 7721121-1 (Version None)
Quarter: 2011Q3

REPORT INFORMATION
  Report Type: 
  Country: None (occurrence: None)
  Receive Date: 20110830
  Receipt Date: 20110830
  Transmission Date: 20111222
  Serious: No
  Sender: FDA-Public Use
  Company Number: None

PATIENT
  Sex: Female
  Weight: 49.8957 kg

DRUGS (1)
  1. FOSAMAX [Suspect]
     Dosage: DAILY MOUTH
     Route: 048

REACTIONS (1)
  - ANKLE FRACTURE [None]
